FAERS Safety Report 6972440-8 (Version None)
Quarter: 2010Q3

REPORT INFORMATION
  Report Type: 
  Country: None (occurrence: None)
  Receive Date: 20100909
  Receipt Date: 20100826
  Transmission Date: 20110219
  Serious: Yes (Hospitalization, Other)
  Sender: FDA-Public Use
  Company Number: PHHY2010BR56895

PATIENT
  Age: 36 Year
  Sex: Male

DRUGS (2)
  1. GLEEVEC [Suspect]
     Indication: CHRONIC MYELOID LEUKAEMIA
     Dosage: 600 MG DAILY
     Route: 048
  2. CYCLOSPORINE [Suspect]

REACTIONS (6)
  - MUSCLE SPASMS [None]
  - NEUTROPENIA [None]
  - PAIN [None]
  - PREMATURE EJACULATION [None]
  - RESPIRATORY TRACT INFECTION [None]
  - SINUSITIS [None]
